FAERS Safety Report 5922164-0 (Version None)
Quarter: 2008Q4

REPORT INFORMATION
  Report Type: 
  Country: None (occurrence: None)
  Receive Date: 20081014
  Receipt Date: 20081007
  Transmission Date: 20090506
  Serious: Yes (Hospitalization)
  Sender: FDA-Public Use
  Company Number: 2008BI014665

PATIENT
  Age: 62 Year
  Sex: Female

DRUGS (12)
  1. TYSABRI [Suspect]
     Indication: MULTIPLE SCLEROSIS
     Dosage: 300 MG; QM; IV
     Route: 042
     Dates: start: 20080312
  2. ZOLOFT [Concomitant]
  3. BACLOFEN [Concomitant]
  4. NEURONTIN [Concomitant]
  5. TYLENOL [Concomitant]
  6. CALMOSEPTINE OINTMENT [Concomitant]
  7. .. [Concomitant]
  8. IBUPROFEN [Concomitant]
  9. ADVAIR DISKUS 100/50 [Concomitant]
  10. MUCINEX [Concomitant]
  11. DETROL [Concomitant]
  12. COMBIVENT [Concomitant]

REACTIONS (10)
  - CELLULITIS [None]
  - CONDITION AGGRAVATED [None]
  - DIARRHOEA [None]
  - ENCEPHALOPATHY [None]
  - HYPOKALAEMIA [None]
  - HYPONATRAEMIA [None]
  - LOBAR PNEUMONIA [None]
  - MULTIPLE SCLEROSIS [None]
  - SEPSIS [None]
  - URINARY TRACT INFECTION [None]
